FAERS Safety Report 7012067-5 (Version None)
Quarter: 2010Q3

REPORT INFORMATION
  Report Type: 
  Country: None (occurrence: None)
  Receive Date: 20100924
  Receipt Date: 20100916
  Transmission Date: 20110219
  Serious: Yes (Other)
  Sender: FDA-Public Use
  Company Number: US-ASTRAZENECA-2008UW28864

PATIENT
  Age: 593 Month
  Sex: Male

DRUGS (6)
  1. SEROQUEL [Suspect]
     Indication: SCHIZOPHRENIA
     Route: 048
     Dates: start: 20010105
  2. SEROQUEL [Suspect]
     Dosage: 250 MG TO 900 MG
     Route: 048
     Dates: start: 20050201, end: 20080301
  3. LOVASTATIN [Concomitant]
  4. TRILEPTAL [Concomitant]
  5. AMBIEN CR [Concomitant]
  6. LIPITOR [Concomitant]
     Indication: HYPERLIPIDAEMIA

REACTIONS (2)
  - DIABETES MELLITUS [None]
  - DIABETIC NEUROPATHY [None]
